FAERS Safety Report 24620907 (Version 1)
Quarter: 2024Q4

REPORT INFORMATION
  Report Type: Spontaneous
  Country: US (occurrence: US)
  Receive Date: 20241114
  Receipt Date: 20241114
  Transmission Date: 20250115
  Serious: Yes (Life-Threatening, Hospitalization)
  Sender: AUROBINDO
  Company Number: US-MLMSERVICE-20241025-PI239847-00327-1

PATIENT
  Age: 54 Year
  Sex: Female

DRUGS (3)
  1. DIVALPROEX SODIUM [Suspect]
     Active Substance: DIVALPROEX SODIUM
     Indication: Seizure prophylaxis
     Dosage: 250 MILLIGRAM, TWO TIMES A DAY LOW DOSE
     Route: 065
  2. DIVALPROEX SODIUM [Suspect]
     Active Substance: DIVALPROEX SODIUM
     Indication: Mood swings
  3. VERAPAMIL [Concomitant]
     Active Substance: VERAPAMIL HYDROCHLORIDE
     Indication: Reversible cerebral vasoconstriction syndrome
     Dosage: UNK
     Route: 065

REACTIONS (1)
  - Porphyria [Recovering/Resolving]
